FAERS Safety Report 20580076 (Version 1)
Quarter: 2022Q1

REPORT INFORMATION
  Report Type: Spontaneous
  Country: CN (occurrence: CN)
  Receive Date: 20220310
  Receipt Date: 20220310
  Transmission Date: 20220423
  Serious: Yes (Other)
  Sender: FDA-Public Use
  Company Number: CN-BAXTER-2022BAX004871

PATIENT
  Age: 4 Year
  Sex: Male
  Weight: 22 kg

DRUGS (15)
  1. CYCLOPHOSPHAMIDE [Suspect]
     Active Substance: CYCLOPHOSPHAMIDE
     Indication: Retroperitoneal neoplasm
     Dosage: CYCLE 1 TO 3 CHEMOTHERAPY
     Route: 041
  2. CYCLOPHOSPHAMIDE [Suspect]
     Active Substance: CYCLOPHOSPHAMIDE
     Indication: Neuroblastoma
     Dosage: CYCLOPHOSPHAMIDE 1.6 G + 0.9% NS 250 ML QD IVGTT, CYCLE 4 CHEMOTHERAPY
     Route: 041
     Dates: start: 20220115, end: 20220216
  3. CYCLOPHOSPHAMIDE [Suspect]
     Active Substance: CYCLOPHOSPHAMIDE
     Indication: Neoplasm malignant
  4. DOXORUBICIN HYDROCHLORIDE [Suspect]
     Active Substance: DOXORUBICIN HYDROCHLORIDE
     Indication: Retroperitoneal neoplasm
     Dosage: CYCLE 1 TO 3 CHEMOTHERAPY
     Route: 041
  5. DOXORUBICIN HYDROCHLORIDE [Suspect]
     Active Substance: DOXORUBICIN HYDROCHLORIDE
     Indication: Neuroblastoma
     Dosage: CYCLE 4 CHEMOTHERAPY, DOXORUBICIN 19 MG + 5% GS 100ML QD IVGTT.
     Route: 041
     Dates: start: 20220115, end: 20220117
  6. DOXORUBICIN HYDROCHLORIDE [Suspect]
     Active Substance: DOXORUBICIN HYDROCHLORIDE
     Indication: Neoplasm malignant
  7. VINCRISTINE SULFATE [Suspect]
     Active Substance: VINCRISTINE SULFATE
     Indication: Retroperitoneal neoplasm
     Dosage: CYCLE 1-3 CHEMOTHERAPY
     Route: 041
  8. VINCRISTINE SULFATE [Suspect]
     Active Substance: VINCRISTINE SULFATE
     Indication: Neuroblastoma
     Dosage: CYCLE 4 VINCRISTINE 0.5 MG + 0.9% NS 30ML
     Route: 041
     Dates: start: 20220115, end: 20220117
  9. VINCRISTINE SULFATE [Suspect]
     Active Substance: VINCRISTINE SULFATE
     Indication: Neoplasm malignant
  10. SODIUM CHLORIDE [Suspect]
     Active Substance: SODIUM CHLORIDE
     Indication: Medication dilution
     Dosage: CYCLE 1-3 CHEMOTHERAPY
     Route: 041
  11. SODIUM CHLORIDE [Suspect]
     Active Substance: SODIUM CHLORIDE
     Dosage: CYCLE 4 VINCRISTINE 0.5 MG + 0.9% NS 30ML
     Route: 041
     Dates: start: 20220115, end: 20220117
  12. SODIUM CHLORIDE [Suspect]
     Active Substance: SODIUM CHLORIDE
     Indication: Medication dilution
     Dosage: CYCLE 1-3 CHEMOTHERAPY
     Route: 041
  13. SODIUM CHLORIDE [Suspect]
     Active Substance: SODIUM CHLORIDE
     Dosage: CYCLE 4 CYCLOPHOSPHAMIDE 1.6 G + 0.9% NS 250 ML
     Route: 041
     Dates: start: 20220115, end: 20220116
  14. DEXTROSE [Suspect]
     Active Substance: DEXTROSE
     Indication: Medication dilution
     Dosage: CYCLE 1-3 CHEMOTHERAPY
     Route: 041
  15. DEXTROSE [Suspect]
     Active Substance: DEXTROSE
     Dosage: CYCLE 4 DOXORUBICIN 19 MG + 5% GLUCOSE 100ML
     Route: 041
     Dates: start: 20220115, end: 20220117

REACTIONS (4)
  - Epistaxis [Recovering/Resolving]
  - Anal ulcer [Recovering/Resolving]
  - Myelosuppression [Recovering/Resolving]
  - Infection [Recovering/Resolving]

NARRATIVE: CASE EVENT DATE: 20220118
